FAERS Safety Report 6981963-7 (Version None)
Quarter: 2010Q3

REPORT INFORMATION
  Report Type: 
  Country: None (occurrence: None)
  Receive Date: 20100914
  Receipt Date: 20091102
  Transmission Date: 20110219
  Serious: No
  Sender: FDA-Public Use
  Company Number: US-PFIZER INC-2009292642

PATIENT
  Sex: Female
  Weight: 86.2 kg

DRUGS (10)
  1. LYRICA [Suspect]
     Indication: FIBROMYALGIA
     Dosage: 75 MG, 1X/DAY
     Dates: start: 20091001
  2. CELEXA [Concomitant]
     Dosage: UNK
  3. HYDROCHLOROTHIAZIDE [Concomitant]
     Dosage: 37.5 MG, UNK
  4. ALLEGRA [Concomitant]
     Indication: SEASONAL ALLERGY
     Dosage: UNK
  5. ALLEGRA [Concomitant]
     Indication: ALLERGY TO ARTHROPOD STING
  6. VICODIN [Concomitant]
     Indication: PAIN
     Dosage: UNK
  7. FLEXERIL [Concomitant]
     Indication: PAIN
     Dosage: UNK
  8. IBUPROFEN [Concomitant]
     Indication: PAIN
     Dosage: UNK
  9. OXYCODONE [Concomitant]
     Indication: PAIN
     Dosage: UNK
  10. VALIUM [Concomitant]
     Indication: MENIERE'S DISEASE
     Dosage: AS NEEDED

REACTIONS (1)
  - DIARRHOEA [None]
